FAERS Safety Report 22957209 (Version 3)
Quarter: 2023Q4

REPORT INFORMATION
  Report Type: Spontaneous
  Country: US (occurrence: US)
  Receive Date: 20230919
  Receipt Date: 20231011
  Transmission Date: 20240110
  Serious: No
  Sender: FDA-Public Use
  Company Number: US-OPELLA-2023OHG008112

PATIENT
  Sex: Male

DRUGS (1)
  1. CORTIZONE 10 PLUS [Suspect]
     Active Substance: HYDROCORTISONE
     Indication: Pruritus
     Route: 065

REACTIONS (2)
  - Drug ineffective [Unknown]
  - No adverse event [Unknown]
